FAERS Safety Report 24827658 (Version 1)
Quarter: 2025Q1

REPORT INFORMATION
  Report Type: Report from Study
  Country: KR (occurrence: KR)
  Receive Date: 20250109
  Receipt Date: 20250109
  Transmission Date: 20250409
  Serious: Yes (Other)
  Sender: JAZZ
  Company Number: KR-BR-LTD-OS-401-059-007

PATIENT
  Age: 62 Year
  Sex: Male
  Weight: 64.4 kg

DRUGS (12)
  1. LURBINECTEDIN [Suspect]
     Active Substance: LURBINECTEDIN
     Indication: Product used for unknown indication
     Dates: start: 20230926
  2. LURBINECTEDIN [Suspect]
     Active Substance: LURBINECTEDIN
     Dosage: 2.6 MILLIGRAM/SQ. METER, Q3W
     Route: 042
     Dates: start: 20231115
  3. GASMOTIN [LEVOSULPIRIDE] [Concomitant]
     Indication: Dyspepsia
     Dosage: 1 PICOGRAM, TID
     Route: 048
     Dates: start: 20230925, end: 20231003
  4. FESTAL PLUS [Concomitant]
     Active Substance: DIMETHICONE\PANCRELIPASE\URSODIOL
     Indication: Dyspepsia
     Dosage: 1 DOSAGE FORM, TID
     Route: 048
     Dates: start: 20230925, end: 20231003
  5. LEVOTICS CR [Concomitant]
     Indication: Small cell lung cancer
     Dosage: 1 DOSAGE FORM, BID
     Route: 048
     Dates: start: 20230417
  6. REBAMIPIDE [Concomitant]
     Active Substance: REBAMIPIDE
     Indication: Prophylaxis
     Dosage: 1 DOSAGE FORM, TID
     Route: 048
     Dates: start: 20230417
  7. GODEX [ADENINE HYDROCHLORIDE;BIFENDATE;CARNITINE OROTATE;CYANOCOBALAMI [Concomitant]
     Indication: Prophylaxis
     Dosage: 1 DOSAGE FORM, TID
     Dates: start: 20230925, end: 20231003
  8. YUHAN DEXAMETHASONE DISODIUM PHOSPHATE [Concomitant]
     Indication: Prophylaxis
     Dosage: 8 MILLIGRAM, QD
     Route: 042
     Dates: start: 20230926, end: 20240131
  9. ONDANT [Concomitant]
     Indication: Prophylaxis
     Dosage: 1 DOSAGE FORM, QD
     Route: 042
     Dates: start: 20230926, end: 20240131
  10. ONSERAN [Concomitant]
     Indication: Prophylaxis
     Dosage: 1 DOSAGE FORM, BID
     Route: 048
     Dates: start: 20230926, end: 20240202
  11. ANORO ELLIPTA [Concomitant]
     Active Substance: UMECLIDINIUM BROMIDE\VILANTEROL TRIFENATATE
     Indication: Chronic obstructive pulmonary disease
     Dosage: 1 DOSAGE FORM, QD
     Dates: start: 20230619
  12. ACETAMINOPHEN\TRAMADOL [Concomitant]
     Active Substance: ACETAMINOPHEN\TRAMADOL
     Indication: Small cell lung cancer
     Dosage: 1 DOSAGE FORM, BID
     Route: 048
     Dates: start: 20230925, end: 20231024

REACTIONS (2)
  - Pancytopenia [Recovering/Resolving]
  - Pruritus [Recovered/Resolved]

NARRATIVE: CASE EVENT DATE: 20231016
